FAERS Safety Report 23951599 (Version 2)
Quarter: 2024Q3

REPORT INFORMATION
  Report Type: Spontaneous
  Country: US (occurrence: US)
  Receive Date: 20240607
  Receipt Date: 20240923
  Transmission Date: 20241017
  Serious: No
  Sender: PFIZER
  Company Number: US-PFIZER INC-202400187027

PATIENT
  Age: 1 Year
  Sex: Female

DRUGS (2)
  1. EUCRISA [Suspect]
     Active Substance: CRISABOROLE
     Indication: Dermatitis
     Dosage: UNK, DAILY (APPLY TO LEGS AND ARMS)
  2. EUCRISA [Suspect]
     Active Substance: CRISABOROLE
     Dosage: ONCE TO TWICE DAILY FOR MAINTENANCE

REACTIONS (2)
  - Pruritus [Unknown]
  - Off label use [Unknown]
